FAERS Safety Report 22221439 (Version 1)
Quarter: 2023Q2

REPORT INFORMATION
  Report Type: Spontaneous
  Country: FR (occurrence: FR)
  Receive Date: 20230418
  Receipt Date: 20230418
  Transmission Date: 20230722
  Serious: Yes (Hospitalization)
  Sender: FDA-Public Use
  Company Number: None

PATIENT
  Age: 63 Year
  Sex: Male

DRUGS (4)
  1. CLARITHROMYCIN [Suspect]
     Active Substance: CLARITHROMYCIN
     Indication: Helicobacter infection
     Dosage: 1 GRAM DAILY; 500MG MORNING AND EVENING
     Dates: start: 20230302, end: 20230312
  2. AMOXICILLIN [Suspect]
     Active Substance: AMOXICILLIN
     Indication: Helicobacter infection
     Dosage: 2 GRAM DAILY; 1G MORNING AND EVENING
     Dates: start: 20230302, end: 20230312
  3. OMEPRAZOLE [Suspect]
     Active Substance: OMEPRAZOLE
     Indication: Helicobacter infection
     Dosage: 40 MILLIGRAM DAILY; 20MG MORNING AND EVENING,
     Dates: start: 20230302, end: 20230312
  4. FLAGYL [Suspect]
     Active Substance: METRONIDAZOLE\METRONIDAZOLE HYDROCHLORIDE
     Indication: Helicobacter infection
     Dosage: 1 GRAM DAILY; 500MG MORNING AND EVENING WITH THERAPEUTIC WINDOW FROM 08 TO 03/10/23
     Dates: start: 20230302, end: 20230312

REACTIONS (2)
  - Dysarthria [Recovered/Resolved]
  - Motor dysfunction [Recovered/Resolved]

NARRATIVE: CASE EVENT DATE: 20230306
